FAERS Safety Report 19172246 (Version 2)
Quarter: 2021Q2

REPORT INFORMATION
  Report Type: Spontaneous
  Country: JP (occurrence: JP)
  Receive Date: 20210423
  Receipt Date: 20210520
  Transmission Date: 20210717
  Serious: Yes (Hospitalization, Other)
  Sender: FDA-Public Use
  Company Number: JP-ROCHE-2812879

PATIENT
  Age: 41 Year
  Sex: Female

DRUGS (1)
  1. GAZYVA [Suspect]
     Active Substance: OBINUTUZUMAB
     Indication: FOLLICULAR LYMPHOMA
     Dosage: DOSAGE IS UNCERTAIN.
     Route: 041
     Dates: end: 202012

REACTIONS (3)
  - Gastrointestinal ulcer [Unknown]
  - Stomatitis [Not Recovered/Not Resolved]
  - Mouth ulceration [Not Recovered/Not Resolved]
